FAERS Safety Report 23956981 (Version 1)
Quarter: 2024Q2

REPORT INFORMATION
  Report Type: Spontaneous
  Country: US (occurrence: None)
  Receive Date: 20240608
  Receipt Date: 20240608
  Transmission Date: 20240716
  Serious: Yes (Hospitalization)
  Sender: FDA-Public Use
  Company Number: None

PATIENT
  Sex: Female
  Weight: 49.1 kg

DRUGS (1)
  1. TEMOZOLOMIDE [Suspect]
     Active Substance: TEMOZOLOMIDE
     Dates: start: 20240207, end: 20240207

REACTIONS (11)
  - Dyspnoea [None]
  - Asthenia [None]
  - Abdominal pain [None]
  - Hyponatraemia [None]
  - Platelet count decreased [None]
  - Pneumonia [None]
  - Pleural effusion [None]
  - Gallbladder disorder [None]
  - Lung neoplasm malignant [None]
  - Chronic obstructive pulmonary disease [None]
  - Clostridium difficile colitis [None]

NARRATIVE: CASE EVENT DATE: 20240223
